FAERS Safety Report 8304645-8 (Version None)
Quarter: 2012Q2

REPORT INFORMATION
  Report Type: 
  Country: None (occurrence: None)
  Receive Date: 20120423
  Receipt Date: 20120420
  Transmission Date: 20120825
  Serious: Yes (Hospitalization, Other)
  Sender: FDA-Public Use
  Company Number: US-ROCHE-1022408

PATIENT
  Sex: Female
  Weight: 74.91 kg

DRUGS (2)
  1. ACCUTANE [Suspect]
     Indication: ACNE
     Dates: start: 19930101, end: 19931201
  2. ACCUTANE [Suspect]
     Dates: start: 19940101, end: 19940601

REACTIONS (4)
  - CROHN'S DISEASE [None]
  - INTESTINAL OBSTRUCTION [None]
  - ARTHRITIS [None]
  - INFLAMMATORY BOWEL DISEASE [None]
